FAERS Safety Report 8313663-5 (Version None)
Quarter: 2012Q2

REPORT INFORMATION
  Report Type: 
  Country: None (occurrence: None)
  Receive Date: 20120426
  Receipt Date: 20120424
  Transmission Date: 20120825
  Serious: Yes (Other)
  Sender: FDA-Public Use
  Company Number: US-PFIZER INC-2012101687

PATIENT
  Sex: Female
  Weight: 62.585 kg

DRUGS (4)
  1. GEODON [Suspect]
     Indication: BIPOLAR II DISORDER
     Dosage: 60 MG, TWO OR THREE TIMES A DAY
     Dates: start: 20110401, end: 20110101
  2. GEODON [Suspect]
     Dosage: 60MG, UNK
     Dates: start: 20110101
  3. WELLBUTRIN [Concomitant]
     Indication: DEPRESSION
     Dosage: 150 MG, DAILY
  4. GEODON [Suspect]
     Dosage: 20 MG, 2X/DAY

REACTIONS (2)
  - WEIGHT INCREASED [None]
  - FAT TISSUE INCREASED [None]
